FAERS Safety Report 8507111-X (Version None)
Quarter: 2012Q3

REPORT INFORMATION
  Report Type: 
  Country: None (occurrence: None)
  Receive Date: 20120712
  Receipt Date: 20120705
  Transmission Date: 20120928
  Serious: Yes (Death, Life-Threatening, Hospitalization, Other)
  Sender: FDA-Public Use
  Company Number: GB-TEVA-340258ISR

PATIENT
  Sex: Male

DRUGS (3)
  1. TRISENOX [Suspect]
     Indication: ACUTE MYELOID LEUKAEMIA
     Dates: start: 20120515, end: 20120516
  2. ATRACURIUM BESYLATE [Suspect]
     Dates: start: 20120515, end: 20120516
  3. LESTAURTINIB [Suspect]
     Dosage: LESTAURTINIB (CEP-701) OR PLACEBO

REACTIONS (9)
  - ACUTE PROMYELOCYTIC LEUKAEMIA DIFFERENTIATION SYNDROME [None]
  - RENAL FAILURE [None]
  - CARDIAC ARREST [None]
  - HYPOTENSION [None]
  - HAEMODIALYSIS [None]
  - HYPOXIC-ISCHAEMIC ENCEPHALOPATHY [None]
  - RESPIRATORY DISTRESS [None]
  - SUDDEN DEATH [None]
  - SEPSIS [None]
